FAERS Safety Report 8935513 (Version 1)
Quarter: 2012Q4

REPORT INFORMATION
  Report Type: Spontaneous
  Country: US (occurrence: None)
  Receive Date: 20121128
  Receipt Date: 20121128
  Transmission Date: 20130627
  Serious: Yes (Hospitalization)
  Sender: FDA-Public Use
  Company Number: None

PATIENT
  Sex: Female
  Weight: 96.82 kg

DRUGS (1)
  1. CARBOPLATIN [Suspect]
     Dosage: 325 mg

REACTIONS (7)
  - Fall [None]
  - Tibia fracture [None]
  - Haemoglobin decreased [None]
  - Depressed level of consciousness [None]
  - Aggression [None]
  - Transient ischaemic attack [None]
  - Open fracture [None]
